FAERS Safety Report 5408164-8 (Version None)
Quarter: 2007Q3

REPORT INFORMATION
  Report Type: 
  Country: None (occurrence: None)
  Receive Date: 20070806
  Receipt Date: 20070802
  Transmission Date: 20080115
  Serious: Yes (Death, Life-Threatening)
  Sender: FDA-Public Use
  Company Number: 2007SP004320

PATIENT
  Age: 80 Year
  Sex: Female
  Weight: 54 kg

DRUGS (17)
  1. TEMODAL [Suspect]
     Indication: ANAPLASTIC ASTROCYTOMA
     Dosage: 75 MG/M2;QD;PO
     Route: 048
     Dates: start: 20070110, end: 20070219
  2. FERON (INTERFERON BETA) [Suspect]
     Indication: ANAPLASTIC ASTROCYTOMA
     Dosage: ;INDRP
     Dates: start: 20070110, end: 20070219
  3. BAKTAR [Concomitant]
  4. ADALAT [Concomitant]
  5. TEGRETOL [Concomitant]
  6. ISOBIDE [Concomitant]
  7. BIOFERMIN [Concomitant]
  8. FAMOTIDINE [Concomitant]
  9. PREDONINE [Concomitant]
  10. CANDESARTAN CILEXETIL [Concomitant]
  11. ZOFRAN [Concomitant]
  12. INDOMETHACIN [Concomitant]
  13. PERDIPINE [Concomitant]
  14. GLYCEOL [Concomitant]
  15. RINDERON [Concomitant]
  16. FLORID [Concomitant]
  17. KENALOG [Concomitant]

REACTIONS (2)
  - LYMPHOCYTE COUNT DECREASED [None]
  - SEPTIC SHOCK [None]
